FAERS Safety Report 5817091-3 (Version None)
Quarter: 2008Q3

REPORT INFORMATION
  Report Type: 
  Country: None (occurrence: None)
  Receive Date: 20080722
  Receipt Date: 20080715
  Transmission Date: 20090109
  Serious: Yes (Life-Threatening)
  Sender: FDA-Public Use
  Company Number: NL-TEVA-174338ISR

PATIENT
  Sex: Female
  Weight: 58 kg

DRUGS (4)
  1. METHOTREXATE SODIUM TABLETS,10 MG [Suspect]
     Indication: RHEUMATOID ARTHRITIS
     Route: 048
     Dates: start: 19990701, end: 20021201
  2. REMICADE [Suspect]
     Indication: RHEUMATOID ARTHRITIS
     Dates: start: 20010401, end: 20080501
  3. FOSAVANCE 70MG/28001E [Concomitant]
  4. CALCIUM CARBONATE [Concomitant]
     Route: 048

REACTIONS (1)
  - LUNG NEOPLASM MALIGNANT [None]
